FAERS Safety Report 5685553-8 (Version None)
Quarter: 2008Q1

REPORT INFORMATION
  Report Type: 
  Country: None (occurrence: None)
  Receive Date: 20080328
  Receipt Date: 20070830
  Transmission Date: 20080703
  Serious: No
  Sender: FDA-Public Use
  Company Number: US-BAYER-US-2007-033483

PATIENT
  Age: 17 Year
  Sex: Female

DRUGS (2)
  1. MIRENA [Suspect]
     Indication: CONTRACEPTION
     Route: 015
     Dates: start: 20070618
  2. LEXAPRO [Concomitant]
     Indication: DEPRESSION
     Dosage: UNIT DOSE: 10 MG
     Route: 048
     Dates: start: 20070601

REACTIONS (5)
  - CHILLS [None]
  - HYPOMENORRHOEA [None]
  - IUCD COMPLICATION [None]
  - PELVIC PAIN [None]
  - VAGINAL DISCHARGE [None]
